FAERS Safety Report 5787415-4 (Version None)
Quarter: 2008Q2

REPORT INFORMATION
  Report Type: 
  Country: None (occurrence: None)
  Receive Date: 20080625
  Receipt Date: 20080619
  Transmission Date: 20081010
  Serious: Yes (Hospitalization)
  Sender: FDA-Public Use
  Company Number: BE-ASTRAZENECA-2008AC01540

PATIENT
  Sex: Female

DRUGS (15)
  1. SYMBICORT FORTE [Suspect]
     Dosage: 320/9 UG ONE INHALATION BID
     Route: 055
     Dates: end: 20080601
  2. SPIRIVA [Concomitant]
  3. HYPAN [Concomitant]
     Indication: CARDIAC DISORDER
  4. DOC TRAZODONE [Concomitant]
     Indication: ANTIDEPRESSANT THERAPY
  5. ASAFLOW [Concomitant]
     Indication: ANTICOAGULANT THERAPY
  6. CORUNO [Concomitant]
  7. DOCCAPTOPRI [Concomitant]
  8. DOCSIMVASTA [Concomitant]
     Indication: HYPERCHOLESTEROLAEMIA
  9. FLUNITRAZEPAM [Concomitant]
     Indication: SLEEP DISORDER
  10. FUROSEMIDE EG [Concomitant]
     Indication: PULMONARY OEDEMA
  11. CARVEDILOL [Concomitant]
     Indication: ARRHYTHMIA
  12. LARROXIN [Concomitant]
  13. TEVETEN [Concomitant]
     Indication: CARDIAC DISORDER
  14. COSOPT [Concomitant]
     Indication: EYE DISORDER
     Route: 047
  15. SINGULAIR [Concomitant]
     Indication: NASOPHARYNGITIS

REACTIONS (2)
  - BALANCE DISORDER [None]
  - CONTUSION [None]
